FAERS Safety Report 18393251 (Version 1)
Quarter: 2020Q4

REPORT INFORMATION
  Report Type: Spontaneous
  Country: HU (occurrence: HU)
  Receive Date: 20201016
  Receipt Date: 20201016
  Transmission Date: 20210114
  Serious: Yes (Other)
  Sender: FDA-Public Use
  Company Number: HU-JNJFOC-20201013491

PATIENT

DRUGS (2)
  1. MIGLUSTAT. [Suspect]
     Active Substance: MIGLUSTAT
     Indication: NIEMANN-PICK DISEASE
     Route: 065
  2. 2-HYDROXYPROPYL-BETA-CYCLODEXTRIN [Concomitant]
     Indication: NIEMANN-PICK DISEASE
     Dosage: INFUSIONS DURING 6-8 HOURS
     Route: 042
     Dates: start: 202008

REACTIONS (12)
  - Salivary hypersecretion [Unknown]
  - Communication disorder [Unknown]
  - Frontal lobe epilepsy [Unknown]
  - Incontinence [Unknown]
  - Hypotonia [Unknown]
  - Disturbance in attention [Unknown]
  - Feeding disorder [Unknown]
  - Diarrhoea [Recovered/Resolved]
  - Disability assessment scale score increased [Unknown]
  - Walking aid user [Unknown]
  - Somnolence [Unknown]
  - Dysphagia [Unknown]
